FAERS Safety Report 20907632 (Version 1)
Quarter: 2022Q2

REPORT INFORMATION
  Report Type: Spontaneous
  Country: US (occurrence: US)
  Receive Date: 20220602
  Receipt Date: 20220602
  Transmission Date: 20220720
  Serious: No
  Sender: FDA-Public Use
  Company Number: US-PFIZER INC-202200785240

PATIENT
  Age: 37 Year
  Sex: Male
  Weight: 122.47 kg

DRUGS (1)
  1. PAXLOVID [Suspect]
     Active Substance: NIRMATRELVIR\RITONAVIR
     Indication: COVID-19 treatment
     Dosage: UNK, 2X/DAY (TAKE THIS ONE IN THE MORNING AND THIS ONE AT NIGHT)
     Dates: start: 20220528

REACTIONS (4)
  - Therapeutic response unexpected [Unknown]
  - Dysgeusia [Unknown]
  - Fatigue [Unknown]
  - Prescription drug used without a prescription [Unknown]

NARRATIVE: CASE EVENT DATE: 20220501
